FAERS Safety Report 7349687-4 (Version None)
Quarter: 2011Q1

REPORT INFORMATION
  Report Type: 
  Country: None (occurrence: None)
  Receive Date: 20110218
  Receipt Date: 20100517
  Transmission Date: 20110831
  Serious: Yes (Hospitalization)
  Sender: FDA-Public Use
  Company Number: US-IGSA-IG676

PATIENT
  Age: 48 Year
  Sex: Female
  Weight: 114 kg

DRUGS (13)
  1. ALBUTEROL [Concomitant]
  2. PROTONIX [Concomitant]
  3. TORADOL [Concomitant]
  4. NORFLEX [Concomitant]
  5. ZOFRAN [Concomitant]
  6. FLEBOGAMMA 5% DIF [Suspect]
  7. SPIRIVA [Concomitant]
  8. FLEBOGAMMA 5% DIF [Suspect]
     Indication: SELECTIVE IGG SUBCLASS DEFICIENCY
     Dosage: 45 G EVERY 4 WK IV
     Route: 042
     Dates: start: 20100517, end: 20100517
  9. LOPRESSOR [Concomitant]
  10. SYMBICORT [Concomitant]
  11. MIRAPEX [Concomitant]
  12. FLEBOGAMMA 5% DIF [Suspect]
  13. LEXAPRO [Concomitant]

REACTIONS (5)
  - DYSPNOEA [None]
  - PRURITUS [None]
  - BACK PAIN [None]
  - WHEEZING [None]
  - COUGH [None]
